FAERS Safety Report 13397566 (Version 3)
Quarter: 2017Q2

REPORT INFORMATION
  Report Type: Spontaneous
  Country: IT (occurrence: IT)
  Receive Date: 20170403
  Receipt Date: 20170421
  Transmission Date: 20170830
  Serious: Yes (Hospitalization)
  Sender: FDA-Public Use
  Company Number: IT-PFIZER INC-2017141473

PATIENT
  Age: 85 Year
  Sex: Female

DRUGS (2)
  1. LORAZEPAM. [Suspect]
     Active Substance: LORAZEPAM
     Indication: DRUG USE DISORDER
     Dosage: 10 DF, TOTAL
     Route: 048
  2. ALPRAZOLAM. [Suspect]
     Active Substance: ALPRAZOLAM
     Indication: DRUG USE DISORDER
     Dosage: UNK, TOTAL
     Route: 048

REACTIONS (4)
  - Overdose [Unknown]
  - Drug use disorder [Unknown]
  - Pneumonitis [Unknown]
  - Sopor [Unknown]

NARRATIVE: CASE EVENT DATE: 20170123
